FAERS Safety Report 8314180-9 (Version None)
Quarter: 2012Q2

REPORT INFORMATION
  Report Type: 
  Country: None (occurrence: None)
  Receive Date: 20120426
  Receipt Date: 20120417
  Transmission Date: 20120825
  Serious: Yes (Other)
  Sender: FDA-Public Use
  Company Number: PHEH2012US004266

PATIENT
  Sex: Female

DRUGS (15)
  1. VITAMIN B6 [Suspect]
     Dosage: 1 DF, QD
  2. EXELON [Suspect]
     Dosage: 9.5 MG, QD
     Route: 062
     Dates: start: 20110101
  3. ISONIAZID [Suspect]
     Dosage: 300 MG, QD
  4. REQUIP [Concomitant]
     Indication: RESTLESS LEGS SYNDROME
     Dosage: 2 DF, TID
     Route: 048
  5. ACIPHEX [Concomitant]
     Dosage: 1 DF, QD
  6. CLONAZEPAM [Concomitant]
     Dosage: 3 DF, QD
  7. LEVOTHYROXINE SODIUM [Concomitant]
     Indication: THYROID DISORDER
     Dosage: 137 UG, QD
  8. ONDANSETRON [Concomitant]
     Indication: NAUSEA
     Dosage: 8 MG
  9. SERTRALINE HYDROCHLORIDE [Concomitant]
     Dosage: 100 MG, QD
  10. CARBIDOPA + LEVODOPA [Concomitant]
     Dosage: 3 DF, QD
  11. VITAMIN D [Concomitant]
     Dosage: UNK
  12. PROVENTIL [Concomitant]
     Dosage: EVERY 4 HOURS BUT SHE FORGETS IT SOMETIMES
  13. METFORMIN HCL [Suspect]
     Dosage: 500 MG, UNK
  14. ALBUTEROL SULFATE AND IPRATROPIUM BROMIDE [Suspect]
     Dosage: UNK
  15. LOVASTATIN [Concomitant]
     Dosage: 40 MG, QD

REACTIONS (11)
  - BLOOD GLUCOSE INCREASED [None]
  - HYPOPHAGIA [None]
  - NAUSEA [None]
  - HIP FRACTURE [None]
  - BALANCE DISORDER [None]
  - VIRAL INFECTION [None]
  - INSOMNIA [None]
  - UPPER LIMB FRACTURE [None]
  - WEIGHT DECREASED [None]
  - TREMOR [None]
  - FALL [None]
